FAERS Safety Report 9731077 (Version 66)
Quarter: 2021Q3

REPORT INFORMATION
  Report Type: Other
  Country: CA (occurrence: CA)
  Receive Date: 20131205
  Receipt Date: 20210709
  Transmission Date: 20211014
  Serious: Yes (Other)
  Sender: FDA-Public Use
  Company Number: CA-ROCHE-1240137

PATIENT
  Age: 55 Year
  Sex: Female
  Weight: 64 kg

DRUGS (21)
  1. ACTEMRA [Suspect]
     Active Substance: TOCILIZUMAB
     Route: 042
     Dates: start: 20151022
  2. ACTEMRA [Suspect]
     Active Substance: TOCILIZUMAB
     Route: 042
     Dates: start: 20190327, end: 20200909
  3. ACTEMRA [Suspect]
     Active Substance: TOCILIZUMAB
     Indication: RHEUMATOID ARTHRITIS
     Route: 058
     Dates: start: 20201015, end: 202105
  4. METHOTREXATE. [Suspect]
     Active Substance: METHOTREXATE
     Indication: PRODUCT USED FOR UNKNOWN INDICATION
     Route: 065
     Dates: end: 201503
  5. CYCLOBENZAPRINE. [Concomitant]
     Active Substance: CYCLOBENZAPRINE
  6. ACTEMRA [Suspect]
     Active Substance: TOCILIZUMAB
     Indication: RHEUMATOID ARTHRITIS
     Route: 042
     Dates: start: 20130131, end: 20151014
  7. ACTEMRA [Suspect]
     Active Substance: TOCILIZUMAB
     Route: 042
     Dates: start: 20141008
  8. ACTEMRA [Suspect]
     Active Substance: TOCILIZUMAB
     Route: 042
     Dates: start: 2019
  9. TYLENOL [Concomitant]
     Active Substance: ACETAMINOPHEN
  10. ACTEMRA [Suspect]
     Active Substance: TOCILIZUMAB
     Route: 042
     Dates: start: 20190227, end: 20190227
  11. FOLIC ACID. [Concomitant]
     Active Substance: FOLIC ACID
  12. HUMIRA [Concomitant]
     Active Substance: ADALIMUMAB
  13. CELEXA [Concomitant]
     Active Substance: CITALOPRAM HYDROBROMIDE
  14. ACTEMRA [Suspect]
     Active Substance: TOCILIZUMAB
     Route: 042
     Dates: start: 20141203
  15. ACTEMRA [Suspect]
     Active Substance: TOCILIZUMAB
     Route: 042
     Dates: start: 20151111
  16. LORAZEPAM. [Concomitant]
     Active Substance: LORAZEPAM
  17. ACTEMRA [Suspect]
     Active Substance: TOCILIZUMAB
     Dosage: INDUSION: 63
     Route: 042
     Dates: start: 20180228
  18. DICLOFENAC [Concomitant]
     Active Substance: DICLOFENAC
  19. ACTEMRA [Suspect]
     Active Substance: TOCILIZUMAB
     Route: 042
     Dates: start: 20130107
  20. ACTEMRA [Suspect]
     Active Substance: TOCILIZUMAB
     Route: 042
     Dates: end: 20190130
  21. ACTEMRA [Suspect]
     Active Substance: TOCILIZUMAB
     Dosage: HALF DOSE; UNCLEAR IF PATIENT MEANS BIWEEKLY OR HALF THE DOSE PER INJECTION; CLARIFICATION REQUESTED
     Route: 058
     Dates: start: 202105

REACTIONS (33)
  - Bronchitis [Recovering/Resolving]
  - Poor venous access [Unknown]
  - Platelet count decreased [Unknown]
  - Heart rate decreased [Unknown]
  - Weight increased [Unknown]
  - Peripheral coldness [Unknown]
  - Urinary tract infection [Recovering/Resolving]
  - Blood pressure increased [Unknown]
  - Blood pressure increased [Unknown]
  - Blood pressure systolic increased [Unknown]
  - Gastritis [Unknown]
  - Sinus congestion [Recovering/Resolving]
  - Cystitis [Unknown]
  - Platelet count decreased [Unknown]
  - Nasopharyngitis [Unknown]
  - Infusion related reaction [Unknown]
  - Vomiting [Recovering/Resolving]
  - Mallory-Weiss syndrome [Unknown]
  - Oropharyngeal pain [Unknown]
  - Poor venous access [Unknown]
  - Haemoglobin decreased [Not Recovered/Not Resolved]
  - Tooth abscess [Unknown]
  - Productive cough [Unknown]
  - Oxygen saturation decreased [Unknown]
  - Lower respiratory tract congestion [Unknown]
  - Herpes zoster [Unknown]
  - Blood pressure fluctuation [Unknown]
  - Micturition frequency decreased [Unknown]
  - Diarrhoea [Recovering/Resolving]
  - White blood cell count decreased [Unknown]
  - Vasoconstriction [Unknown]
  - Disability assessment scale score increased [Not Recovered/Not Resolved]
  - Blood pressure diastolic increased [Unknown]

NARRATIVE: CASE EVENT DATE: 201306
